FAERS Safety Report 14244840 (Version 6)
Quarter: 2018Q1

REPORT INFORMATION
  Report Type: Spontaneous
  Country: US (occurrence: US)
  Receive Date: 20171201
  Receipt Date: 20180323
  Transmission Date: 20180508
  Serious: Yes (Hospitalization)
  Sender: FDA-Public Use
  Company Number: US-ACTELION-A-US2017-163261

PATIENT
  Age: 57 Year
  Sex: Female

DRUGS (8)
  1. HYDROCHLOROTHIAZIDE W/TRIAMTERENE [Concomitant]
     Active Substance: HYDROCHLOROTHIAZIDE\TRIAMTERENE
     Dosage: UNK MG, QD
  2. WARFARIN [Concomitant]
     Active Substance: WARFARIN
     Dosage: 5 MG ON M/THU; 7.5MG ON TU/W/F/SA/SUN
  3. NEXIUM [Concomitant]
     Active Substance: ESOMEPRAZOLE MAGNESIUM
     Dosage: 40 MG, QD
     Dates: start: 201710
  4. OPSUMIT [Suspect]
     Active Substance: MACITENTAN
     Indication: PULMONARY ARTERIAL HYPERTENSION
     Dosage: 10 MG, QD
     Route: 048
     Dates: start: 20171030
  5. ATORVASTATIN [Concomitant]
     Active Substance: ATORVASTATIN
     Dosage: 40 MG, QD
  6. CINNAMON. [Concomitant]
     Active Substance: CINNAMON
     Dosage: 1000 MG, QD
  7. SILDENAFIL. [Concomitant]
     Active Substance: SILDENAFIL
     Dosage: 20 MG, TID
     Dates: start: 2012
  8. VIAGRA [Concomitant]
     Active Substance: SILDENAFIL CITRATE

REACTIONS (10)
  - Dyspnoea [Not Recovered/Not Resolved]
  - Malaise [Recovered/Resolved]
  - Arthralgia [Recovering/Resolving]
  - Night sweats [Not Recovered/Not Resolved]
  - Heart rate increased [Not Recovered/Not Resolved]
  - Urinary tract infection [Unknown]
  - Anxiety [Recovering/Resolving]
  - Hip arthroplasty [Recovering/Resolving]
  - Arthropathy [Recovering/Resolving]
  - Condition aggravated [Recovering/Resolving]

NARRATIVE: CASE EVENT DATE: 201710
